FAERS Safety Report 5064421-9 (Version None)
Quarter: 2006Q3

REPORT INFORMATION
  Report Type: 
  Country: None (occurrence: None)
  Receive Date: 20060728
  Receipt Date: 20060621
  Transmission Date: 20061208
  Serious: Yes (Other)
  Sender: FDA-Public Use
  Company Number: HU-BRISTOL-MYERS SQUIBB COMPANY-13419833

PATIENT
  Age: 29 Year
  Sex: Female
  Weight: 58 kg

DRUGS (11)
  1. ARIPIPRAZOLE [Suspect]
     Indication: SCHIZOPHRENIA
     Dosage: 15 MG DAILY X 7 DAYS, THEN 30 MG DAILY
     Route: 048
     Dates: start: 20060525
  2. ARIPIPRAZOLE [Suspect]
     Indication: SCHIZOPHRENIA, DISORGANISED TYPE
     Dosage: 15 MG DAILY X 7 DAYS, THEN 30 MG DAILY
     Route: 048
     Dates: start: 20060525
  3. ZYPREXA [Concomitant]
  4. METOPROLOL SUCCINATE [Concomitant]
  5. BETALOC [Concomitant]
  6. RIVOTRIL [Concomitant]
  7. BETALOC ZOK [Concomitant]
  8. QUAMATEL [Concomitant]
  9. VELAXIN [Concomitant]
  10. AKINETON [Concomitant]
  11. GERODORM [Concomitant]

REACTIONS (2)
  - HAEMATOMA [None]
  - MENORRHAGIA [None]
